FAERS Safety Report 19557490 (Version 2)
Quarter: 2021Q3

REPORT INFORMATION
  Report Type: Spontaneous
  Country: IL (occurrence: IL)
  Receive Date: 20210714
  Receipt Date: 20210802
  Transmission Date: 20211014
  Serious: Yes (Hospitalization, Other)
  Sender: FDA-Public Use
  Company Number: IL-B.I. PHARMACEUTICALS,INC./RIDGEFIELD-2021-BI-114948

PATIENT
  Age: 62 Year
  Sex: Female
  Weight: 72 kg

DRUGS (2)
  1. JARDIANCE DUO [Suspect]
     Active Substance: EMPAGLIFLOZIN\METFORMIN HYDROCHLORIDE
     Indication: TYPE 2 DIABETES MELLITUS
     Dosage: 12.5/1000 MG
     Dates: start: 20210601, end: 20210703
  2. OZEMPIC [Concomitant]
     Active Substance: SEMAGLUTIDE
     Indication: PRODUCT USED FOR UNKNOWN INDICATION

REACTIONS (7)
  - Decreased appetite [Recovered/Resolved]
  - Diabetic ketoacidosis [Recovered/Resolved]
  - Malaise [Recovered/Resolved]
  - Renal impairment [Recovered/Resolved]
  - Altered state of consciousness [Unknown]
  - Dehydration [Unknown]
  - Vomiting [Recovered/Resolved]
